FAERS Safety Report 6810605-6 (Version None)
Quarter: 2010Q2

REPORT INFORMATION
  Report Type: 
  Country: None (occurrence: None)
  Receive Date: 20100630
  Receipt Date: 20100624
  Transmission Date: 20101027
  Serious: Yes (Other)
  Sender: FDA-Public Use
  Company Number: IE-BAXTER-2010BH013814

PATIENT
  Age: 41 Year
  Sex: Female
  Weight: 83 kg

DRUGS (23)
  1. SODIUM CHLORIDE 0.9% IN PLASTIC CONTAINER [Suspect]
     Indication: BREAST CANCER
     Route: 042
     Dates: start: 20100406, end: 20100406
  2. SODIUM CHLORIDE 0.9% IN PLASTIC CONTAINER [Suspect]
     Route: 042
     Dates: start: 20100406, end: 20100406
  3. SODIUM CHLORIDE 0.9% IN PLASTIC CONTAINER [Suspect]
     Route: 042
     Dates: start: 20100406, end: 20100406
  4. SODIUM CHLORIDE 0.9% IN PLASTIC CONTAINER [Suspect]
     Route: 042
     Dates: start: 20100406, end: 20100406
  5. SODIUM CHLORIDE 0.9% IN PLASTIC CONTAINER [Suspect]
     Route: 042
     Dates: start: 20100406, end: 20100406
  6. DOCETAXEL [Suspect]
     Indication: BREAST CANCER
     Route: 042
     Dates: start: 20100406, end: 20100406
  7. DOCETAXEL [Suspect]
     Route: 042
     Dates: start: 20100406, end: 20100406
  8. DOCETAXEL [Suspect]
     Route: 042
     Dates: start: 20100406, end: 20100406
  9. DOCETAXEL [Suspect]
     Route: 042
     Dates: start: 20100406, end: 20100406
  10. DOCETAXEL [Suspect]
     Route: 042
     Dates: start: 20100406, end: 20100406
  11. DOCETAXEL [Suspect]
     Route: 042
     Dates: start: 20100406, end: 20100406
  12. DOCETAXEL [Suspect]
     Route: 042
     Dates: start: 20100406, end: 20100406
  13. DOCETAXEL [Suspect]
     Route: 042
     Dates: start: 20100406, end: 20100406
  14. DOCETAXEL [Suspect]
     Route: 042
     Dates: start: 20100406, end: 20100406
  15. DOCETAXEL [Suspect]
     Route: 042
     Dates: start: 20100406, end: 20100406
  16. DOCETAXEL [Suspect]
     Route: 042
     Dates: start: 20100406, end: 20100406
  17. DOCETAXEL [Suspect]
     Route: 042
     Dates: start: 20100406, end: 20100406
  18. DOCETAXEL [Suspect]
     Route: 042
     Dates: start: 20100406, end: 20100406
  19. DOCETAXEL [Suspect]
     Route: 042
     Dates: start: 20100406, end: 20100406
  20. DOCETAXEL [Suspect]
     Route: 042
     Dates: start: 20100406, end: 20100406
  21. ALOXI [Concomitant]
     Indication: PROPHYLAXIS OF NAUSEA AND VOMITING
     Route: 042
     Dates: start: 20100406, end: 20100406
  22. DEXAMETHASONE [Concomitant]
     Indication: PREMEDICATION
     Route: 042
     Dates: start: 20100406, end: 20100406
  23. DEXAMETHASONE [Concomitant]
     Route: 048
     Dates: start: 20100406, end: 20100406

REACTIONS (5)
  - DYSPNOEA [None]
  - HYPERSENSITIVITY [None]
  - NAUSEA [None]
  - PARAESTHESIA [None]
  - RASH [None]
